FAERS Safety Report 6794959-5 (Version None)
Quarter: 2010Q2

REPORT INFORMATION
  Report Type: 
  Country: None (occurrence: None)
  Receive Date: 20100625
  Receipt Date: 20100615
  Transmission Date: 20101027
  Serious: Yes (Death, Life-Threatening, Hospitalization, Other)
  Sender: FDA-Public Use
  Company Number: JP-PFIZER INC-2010025895

PATIENT
  Age: 57 Year
  Sex: Female
  Weight: 36 kg

DRUGS (9)
  1. ZOLOFT [Suspect]
     Indication: DEPRESSION
     Dosage: UNK
     Route: 048
     Dates: start: 20091001
  2. GASTER [Suspect]
  3. ONE-ALPHA [Suspect]
     Indication: OSTEOPOROSIS
     Route: 048
  4. FENTANYL [Concomitant]
     Dosage: UNK
     Route: 062
     Dates: end: 20100118
  5. MAGNESIUM OXIDE [Concomitant]
     Route: 048
     Dates: end: 20100118
  6. PANTETHINE [Concomitant]
     Route: 048
     Dates: end: 20100118
  7. RISPERDAL [Concomitant]
     Route: 048
     Dates: end: 20100118
  8. MYSLEE [Concomitant]
     Route: 048
     Dates: end: 20100118
  9. MIRTAZAPINE [Concomitant]
     Route: 048
     Dates: end: 20100118

REACTIONS (6)
  - LARYNGEAL OEDEMA [None]
  - LOSS OF CONSCIOUSNESS [None]
  - LUNG NEOPLASM MALIGNANT [None]
  - OBSTRUCTIVE AIRWAYS DISORDER [None]
  - OEDEMA PERIPHERAL [None]
  - SEPSIS [None]
